FAERS Safety Report 15149138 (Version 1)
Quarter: 2018Q3

REPORT INFORMATION
  Report Type: Spontaneous
  Country: US (occurrence: US)
  Receive Date: 20180619
  Receipt Date: 20180619
  Transmission Date: 20181010
  Serious: No
  Sender: FDA-Public Use
  Company Number: None

PATIENT
  Sex: Male

DRUGS (1)
  1. AFINITOR [Suspect]
     Active Substance: EVEROLIMUS
     Indication: RENAL CANCER
     Route: 048
     Dates: start: 20171205, end: 20180418

REACTIONS (5)
  - Nausea [None]
  - Decreased appetite [None]
  - Hepatic failure [None]
  - Drug ineffective [None]
  - Drug intolerance [None]
